FAERS Safety Report 6827826-9 (Version None)
Quarter: 2010Q3

REPORT INFORMATION
  Report Type: 
  Country: None (occurrence: None)
  Receive Date: 20100709
  Receipt Date: 20070127
  Transmission Date: 20110219
  Serious: No
  Sender: FDA-Public Use
  Company Number: US-PFIZER INC-2007008424

PATIENT
  Age: 53 Year
  Sex: Female
  Weight: 54.43 kg

DRUGS (5)
  1. CHANTIX [Suspect]
     Indication: SMOKING CESSATION THERAPY
     Dates: start: 20061222
  2. TRAZODONE [Concomitant]
  3. LORAZEPAM [Concomitant]
  4. ALL OTHER THERAPEUTIC PRODUCTS [Concomitant]
  5. VOLTAREN [Concomitant]

REACTIONS (1)
  - NAUSEA [None]
